FAERS Safety Report 23521775 (Version 1)
Quarter: 2024Q1

REPORT INFORMATION
  Report Type: Report from Study
  Country: US (occurrence: US)
  Receive Date: 20240214
  Receipt Date: 20240214
  Transmission Date: 20240410
  Serious: Yes (Hospitalization)
  Sender: FDA-Public Use
  Company Number: US-GILEAD-2024-0662011

PATIENT
  Sex: Female

DRUGS (1)
  1. AZTREONAM LYSINE [Suspect]
     Active Substance: AZTREONAM LYSINE
     Indication: Cystic fibrosis lung
     Dosage: INHALE THE CONTENTS OF 1 VIAL VIA ALTERA NEBULIZER THREE TIMES DAILY FOR 28 DAYS EVERY OTHER MONTH
     Route: 055

REACTIONS (1)
  - Infection [Unknown]
